FAERS Safety Report 23105324 (Version 3)
Quarter: 2025Q2

REPORT INFORMATION
  Report Type: Spontaneous
  Country: US (occurrence: US)
  Receive Date: 20231025
  Receipt Date: 20250604
  Transmission Date: 20250717
  Serious: No
  Sender: HISAMITSU PHARMACEUTICAL CO., INC.
  Company Number: US-HISAMITSU PHARMACEUTICAL CO., INC.-2023-NOV-US000832

PATIENT
  Sex: Male

DRUGS (1)
  1. ASENAPINE [Suspect]
     Active Substance: ASENAPINE
     Indication: Craniocerebral injury
     Route: 060

REACTIONS (2)
  - Product use complaint [Unknown]
  - No adverse event [Unknown]

NARRATIVE: CASE EVENT DATE: 20230101
